FAERS Safety Report 18047637 (Version 1)
Quarter: 2020Q3

REPORT INFORMATION
  Report Type: Spontaneous
  Country: US (occurrence: US)
  Receive Date: 20200720
  Receipt Date: 20200720
  Transmission Date: 20201103
  Serious: Yes (Death, Other)
  Sender: FDA-Public Use
  Company Number: None

PATIENT

DRUGS (1)
  1. BLUMEN CLEAR ADVANCED HAND SANITIZER [Suspect]
     Active Substance: ALCOHOL
     Dosage: ?          OTHER DOSE:33.8 FLUID OZ BOT;?

REACTIONS (3)
  - Blood methanol increased [None]
  - Overdose [None]
  - Intentional product use issue [None]

NARRATIVE: CASE EVENT DATE: 20200716
